FAERS Safety Report 20076809 (Version 1)
Quarter: 2021Q4

REPORT INFORMATION
  Report Type: Spontaneous
  Country: US (occurrence: None)
  Receive Date: 20211115
  Receipt Date: 20211115
  Transmission Date: 20220304
  Serious: Yes (Hospitalization)
  Sender: FDA-Public Use
  Company Number: None

PATIENT
  Age: 40 Year
  Sex: Female

DRUGS (1)
  1. ONUREG [Suspect]
     Active Substance: AZACITIDINE
     Indication: Acute myeloid leukaemia
     Dosage: OTHER FREQUENCY : DAILY DAYS 1-14;?
     Route: 048
     Dates: start: 2021

REACTIONS (4)
  - Weight decreased [None]
  - Decreased appetite [None]
  - White blood cell count decreased [None]
  - Febrile neutropenia [None]

NARRATIVE: CASE EVENT DATE: 20210705
